FAERS Safety Report 24214447 (Version 1)
Quarter: 2024Q3

REPORT INFORMATION
  Report Type: Spontaneous
  Country: US (occurrence: US)
  Receive Date: 20240815
  Receipt Date: 20240815
  Transmission Date: 20241017
  Serious: Yes (Other)
  Sender: PFIZER
  Company Number: US-PFIZER INC-202400234303

PATIENT
  Age: 60 Year
  Sex: Male

DRUGS (1)
  1. OXBRYTA [Suspect]
     Active Substance: VOXELOTOR
     Dosage: 1500 MG, 1X/DAY (500MG, 3 TABLETS ONCE DAILY, ORALLY)
     Route: 048
     Dates: start: 2023

REACTIONS (1)
  - Limb injury [Not Recovered/Not Resolved]
